FAERS Safety Report 25998287 (Version 1)
Quarter: 2025Q4

REPORT INFORMATION
  Report Type: Spontaneous
  Country: EU (occurrence: EU)
  Receive Date: 20251105
  Receipt Date: 20251105
  Transmission Date: 20260117
  Serious: Yes (Other)
  Sender: JOHNSON AND JOHNSON
  Company Number: EU-SAMSUNG BIOEPIS-SB-2025-35846

PATIENT
  Age: 53 Year
  Sex: Female

DRUGS (2)
  1. USTEKINUMAB [Suspect]
     Active Substance: USTEKINUMAB
     Indication: Crohn^s disease
     Route: 058
     Dates: start: 202505
  2. USTEKINUMAB [Suspect]
     Active Substance: USTEKINUMAB
     Route: 058

REACTIONS (1)
  - Faecal calprotectin increased [Recovered/Resolved]
